FAERS Safety Report 22094710 (Version 1)
Quarter: 2023Q1

REPORT INFORMATION
  Report Type: Report from Study
  Country: US (occurrence: US)
  Receive Date: 20230314
  Receipt Date: 20230314
  Transmission Date: 20230417
  Serious: Yes (Hospitalization)
  Sender: FDA-Public Use
  Company Number: US-KARYOPHARM-2022KPT001566

PATIENT
  Age: 63 Year
  Sex: Male
  Weight: 78.9 kg

DRUGS (4)
  1. SELINEXOR [Suspect]
     Active Substance: SELINEXOR
     Indication: Haematological malignancy
     Dosage: 80 MG, WEEKLY
     Route: 048
     Dates: start: 20221201, end: 20221215
  2. SELINEXOR [Suspect]
     Active Substance: SELINEXOR
     Dosage: 80 MG, WEEKLY
     Route: 048
     Dates: end: 20230109
  3. VENETOCLAX [Suspect]
     Active Substance: VENETOCLAX
     Indication: Haematological malignancy
     Dosage: 200 MG, QD
     Route: 048
     Dates: start: 20221201, end: 20221215
  4. VENETOCLAX [Suspect]
     Active Substance: VENETOCLAX
     Dosage: 200 MG, QD
     Route: 048
     Dates: start: 20221219, end: 20230109

REACTIONS (5)
  - Fall [Not Recovered/Not Resolved]
  - Pneumonitis aspiration [Not Recovered/Not Resolved]
  - Confusional state [Not Recovered/Not Resolved]
  - Hyponatraemia [Not Recovered/Not Resolved]
  - Fatigue [Not Recovered/Not Resolved]

NARRATIVE: CASE EVENT DATE: 20221206
